FAERS Safety Report 8368009-3 (Version None)
Quarter: 2012Q2

REPORT INFORMATION
  Report Type: 
  Country: None (occurrence: None)
  Receive Date: 20120517
  Receipt Date: 20120513
  Transmission Date: 20120825
  Serious: Yes (Death, Other)
  Sender: FDA-Public Use
  Company Number: JP-BAXTER-2012BAX003803

PATIENT
  Age: 69 Year
  Sex: Female

DRUGS (3)
  1. DIANEAL-N PD-4 2.5 PD SOLUTION [Suspect]
     Indication: RENAL FAILURE CHRONIC
     Route: 033
  2. DIANEAL-N PD-4 1.5 PD SOLUTION [Suspect]
     Indication: RENAL FAILURE CHRONIC
     Route: 033
  3. EXTRANEAL [Suspect]
     Indication: RENAL FAILURE CHRONIC
     Route: 033

REACTIONS (1)
  - DEATH [None]
